FAERS Safety Report 8882123 (Version 1)
Quarter: 2012Q4

REPORT INFORMATION
  Report Type: 
  Country: US (occurrence: US)
  Receive Date: 20121102
  Receipt Date: 20121102
  Transmission Date: 20130627
  Serious: No
  Sender: FDA-Public Use
  Company Number: US-BAYER-2012-112433

PATIENT
  Age: 73 Year
  Sex: Male
  Weight: 86.17 kg

DRUGS (2)
  1. ASPIRIN ^BAYER^ [Suspect]
     Indication: PAIN RELIEF
  2. ALEVE CAPLET/TABLET,MIDOL EXTENDED RELIEF CAPLET [Suspect]
     Indication: PAIN RELIEF
     Dosage: 2 DF, QD
     Route: 048
     Dates: start: 2012

REACTIONS (3)
  - Musculoskeletal discomfort [Not Recovered/Not Resolved]
  - Drug ineffective [None]
  - Musculoskeletal stiffness [Not Recovered/Not Resolved]
